FAERS Safety Report 6214314-6 (Version None)
Quarter: 2009Q2

REPORT INFORMATION
  Report Type: 
  Country: None (occurrence: None)
  Receive Date: 20090602
  Receipt Date: 20090521
  Transmission Date: 20091009
  Serious: Yes (Hospitalization)
  Sender: FDA-Public Use
  Company Number: SPV1-2009-01049

PATIENT
  Age: 68 Year
  Sex: Female

DRUGS (1)
  1. FOSRENOL [Suspect]
     Dosage: 750 MG, ORAL
     Route: 048
     Dates: start: 20090508, end: 20090512

REACTIONS (2)
  - ENTEROCOLITIS HAEMORRHAGIC [None]
  - MELAENA [None]
